FAERS Safety Report 8465856-4 (Version None)
Quarter: 2012Q2

REPORT INFORMATION
  Report Type: 
  Country: None (occurrence: None)
  Receive Date: 20120619
  Receipt Date: 20120604
  Transmission Date: 20120825
  Serious: Yes (Other)
  Sender: FDA-Public Use
  Company Number: TPA2012A03646

PATIENT
  Age: 46 Year
  Sex: Female

DRUGS (5)
  1. ADENURIC (FEBUXOSTAT) [Suspect]
     Indication: PRODUCT USED FOR UNKNOWN INDICATION
     Route: 048
     Dates: start: 20120101
  2. BISOPROLOL FUMARATE [Suspect]
     Indication: PRODUCT USED FOR UNKNOWN INDICATION
     Dosage: 7.5 MG (7. 5 MG, 1 IN 1 D), ORAL
     Route: 048
  3. COLECHIMAX (COLCMICINE, DICYCLOVERINE HDYROCHLORIDE) [Concomitant]
  4. MIMPARA (CINACALCET) [Concomitant]
  5. LASIX [Concomitant]

REACTIONS (4)
  - FATIGUE [None]
  - DRUG INTERACTION [None]
  - BRADYCARDIA [None]
  - NODAL RHYTHM [None]
